FAERS Safety Report 13297164 (Version 1)
Quarter: 2017Q1

REPORT INFORMATION
  Report Type: Spontaneous
  Country: JP (occurrence: JP)
  Receive Date: 20170306
  Receipt Date: 20170306
  Transmission Date: 20170428
  Serious: Yes (Hospitalization)
  Sender: FDA-Public Use
  Company Number: PHJP2017JP007509

PATIENT
  Age: 96 Year
  Sex: Female

DRUGS (3)
  1. DIOVAN [Suspect]
     Active Substance: VALSARTAN
     Indication: HYPERTENSION
     Dosage: 40 MG, QD (MORNING)
     Route: 048
     Dates: end: 20160210
  2. OLMETEC [Concomitant]
     Active Substance: OLMESARTAN MEDOXOMIL
     Indication: PRODUCT USED FOR UNKNOWN INDICATION
     Dosage: 20 MG, QD (EVENING)
     Route: 048
     Dates: end: 20160210
  3. DIOVAN [Suspect]
     Active Substance: VALSARTAN
     Dosage: 40 MG, BID
     Route: 048

REACTIONS (3)
  - Stress fracture [Unknown]
  - Dehydration [Unknown]
  - Product use issue [Unknown]
